FAERS Safety Report 17618596 (Version 4)
Quarter: 2021Q3

REPORT INFORMATION
  Report Type: Spontaneous
  Country: US (occurrence: US)
  Receive Date: 20200402
  Receipt Date: 20210928
  Transmission Date: 20211014
  Serious: Yes (Death, Hospitalization, Other)
  Sender: FDA-Public Use
  Company Number: US-NAPPMUNDI-USA-2020-0150732

PATIENT
  Age: 39 Year
  Sex: Male

DRUGS (9)
  1. RISPERIDONE. [Concomitant]
     Active Substance: RISPERIDONE
     Indication: PRODUCT USED FOR UNKNOWN INDICATION
     Dosage: 2 MG, BID
     Route: 048
  2. VALIUM [Suspect]
     Active Substance: DIAZEPAM
     Indication: PRODUCT USED FOR UNKNOWN INDICATION
     Dosage: UNKNOWN
     Route: 065
  3. PHENOBARBITAL. [Suspect]
     Active Substance: PHENOBARBITAL
     Indication: PRODUCT USED FOR UNKNOWN INDICATION
     Dosage: UNKNOWN, BID
     Route: 065
  4. PAROXETINE. [Concomitant]
     Active Substance: PAROXETINE
     Indication: PRODUCT USED FOR UNKNOWN INDICATION
     Dosage: UNKNOWN
     Route: 065
  5. ZESTRIL [Concomitant]
     Active Substance: LISINOPRIL
     Indication: PRODUCT USED FOR UNKNOWN INDICATION
     Dosage: 5 MG, DAILY
     Route: 065
  6. METHADONE [Suspect]
     Active Substance: METHADONE HYDROCHLORIDE
     Indication: PRODUCT USED FOR UNKNOWN INDICATION
     Dosage: UNKNOWN
     Route: 048
  7. OXYCONTIN [Suspect]
     Active Substance: OXYCODONE HYDROCHLORIDE
     Indication: PAIN
     Dosage: 15 MG, TID
     Route: 048
  8. ATENOLOL. [Concomitant]
     Active Substance: ATENOLOL
     Indication: PRODUCT USED FOR UNKNOWN INDICATION
     Dosage: 50 MG, DAILY
     Route: 048
  9. VALPROIC ACID. [Concomitant]
     Active Substance: VALPROIC ACID
     Indication: PRODUCT USED FOR UNKNOWN INDICATION
     Dosage: 250 MG, UNKNOWN
     Route: 048

REACTIONS (26)
  - Completed suicide [Fatal]
  - Acute kidney injury [Unknown]
  - Drug dependence [Unknown]
  - Hypercapnia [Unknown]
  - Livedo reticularis [Unknown]
  - Blood pressure systolic decreased [Unknown]
  - Pyrexia [Unknown]
  - Cardiac arrest [Unknown]
  - Drug abuse [Unknown]
  - Shock [Unknown]
  - Dry mouth [Unknown]
  - Toxicity to various agents [Fatal]
  - Respiratory failure [Unknown]
  - Coma [Unknown]
  - Tachypnoea [Unknown]
  - Lung consolidation [Unknown]
  - Tachycardia [Unknown]
  - Blister [Unknown]
  - Overdose [Fatal]
  - Unresponsive to stimuli [Unknown]
  - Bradycardia [Unknown]
  - Alcohol abuse [Unknown]
  - Hypoxia [Unknown]
  - Blood pressure systolic increased [Unknown]
  - Cyanosis [Unknown]
  - Leukocytosis [Unknown]

NARRATIVE: CASE EVENT DATE: 20091106
